FAERS Safety Report 12428457 (Version 1)
Quarter: 2016Q2

REPORT INFORMATION
  Report Type: Report from Study
  Country: US (occurrence: US)
  Receive Date: 20160602
  Receipt Date: 20160602
  Transmission Date: 20160815
  Serious: No
  Sender: FDA-Public Use
  Company Number: US-AMGEN-USASL2016068939

PATIENT
  Age: 38 Year
  Sex: Male

DRUGS (1)
  1. ENBREL [Suspect]
     Active Substance: ETANERCEPT
     Indication: PSORIATIC ARTHROPATHY
     Dosage: UNK UNK, 2 TIMES/WK
     Route: 065
     Dates: start: 2015

REACTIONS (5)
  - Injection site extravasation [Unknown]
  - Injection site haemorrhage [Unknown]
  - Joint lock [Unknown]
  - Injection site erythema [Unknown]
  - Off label use [Unknown]

NARRATIVE: CASE EVENT DATE: 2015
